FAERS Safety Report 4344971-0 (Version None)
Quarter: 2004Q2

REPORT INFORMATION
  Report Type: 
  Country: None (occurrence: None)
  Receive Date: 20040421
  Receipt Date: 20040421
  Transmission Date: 20050107
  Serious: No
  Sender: FDA-Public Use
  Company Number: None

PATIENT
  Age: 21 Year
  Sex: Male

DRUGS (3)
  1. GENTAMICIN [Suspect]
     Indication: ENTEROCOCCAL INFECTION
     Dosage: SEE DESCRIPTION
  2. GENTAMICIN [Suspect]
     Indication: WOUND INFECTION
     Dosage: SEE DESCRIPTION
  3. VANCOMYCIN [Concomitant]

REACTIONS (2)
  - BLOOD CREATININE INCREASED [None]
  - LABORATORY TEST ABNORMAL [None]
